FAERS Safety Report 21740694 (Version 1)
Quarter: 2022Q4

REPORT INFORMATION
  Report Type: Spontaneous
  Country: JP (occurrence: JP)
  Receive Date: 20221216
  Receipt Date: 20221216
  Transmission Date: 20230113
  Serious: Yes (Other)
  Sender: FDA-Public Use
  Company Number: JP-PFIZER INC-PV202200118402

PATIENT
  Age: 71 Year
  Sex: Female

DRUGS (1)
  1. METHYLPREDNISOLONE SODIUM SUCCINATE [Suspect]
     Active Substance: METHYLPREDNISOLONE SODIUM SUCCINATE
     Indication: Endocrine ophthalmopathy
     Dosage: UNK (WEEKLY DOSING OF MPSL: 500 MG, 6 DOSES; 250 MG, 6 DOSES)

REACTIONS (3)
  - Adrenal insufficiency [Unknown]
  - Drug-induced liver injury [Unknown]
  - Off label use [Unknown]
